FAERS Safety Report 6601226-9 (Version None)
Quarter: 2010Q1

REPORT INFORMATION
  Report Type: 
  Country: None (occurrence: None)
  Receive Date: 20100225
  Receipt Date: 20100219
  Transmission Date: 20100710
  Serious: Yes (Other)
  Sender: FDA-Public Use
  Company Number: US-BRISTOL-MYERS SQUIBB COMPANY-14985451

PATIENT
  Age: 39 Year
  Sex: Male

DRUGS (4)
  1. REYATAZ [Suspect]
     Indication: HIV INFECTION
  2. LEXAPRO [Concomitant]
  3. TRUVADA [Concomitant]
  4. KLONOPIN [Concomitant]

REACTIONS (2)
  - HERNIA REPAIR [None]
  - NEPHROLITHIASIS [None]
